FAERS Safety Report 8792214 (Version 2)
Quarter: 2013Q1

REPORT INFORMATION
  Report Type: Spontaneous
  Country: US (occurrence: US)
  Receive Date: 20120918
  Receipt Date: 20130115
  Transmission Date: 20140127
  Serious: No
  Sender: FDA-Public Use
  Company Number: US-VERTEX PHARMACEUTICAL INC.-AE-2012-010287

PATIENT
  Age: 61 None
  Sex: Male
  Weight: 98 kg

DRUGS (5)
  1. INCIVEK [Suspect]
     Indication: HEPATITIS C
     Dosage: 750 MG, TID
     Route: 048
     Dates: start: 20120514, end: 20120813
  2. RIBAVIRIN [Suspect]
     Indication: HEPATITIS C
     Dosage: 600 MG, BID
     Route: 048
     Dates: start: 20120514, end: 201207
  3. RIBAVIRIN [Suspect]
     Dosage: 400 MG IN AM, 200 MG IN PM
     Route: 048
     Dates: start: 201207, end: 201208
  4. RIBAVIRIN [Suspect]
     Dosage: 200 MG, BID
     Route: 048
     Dates: start: 201208
  5. PEGASYS [Suspect]
     Indication: HEPATITIS C
     Dosage: 180 ?G, QW
     Route: 058
     Dates: start: 20120514

REACTIONS (13)
  - Chest pain [Not Recovered/Not Resolved]
  - Dyspnoea [Not Recovered/Not Resolved]
  - Poor quality sleep [Not Recovered/Not Resolved]
  - Arthralgia [Not Recovered/Not Resolved]
  - Swelling [Not Recovered/Not Resolved]
  - Cough [Not Recovered/Not Resolved]
  - Dry skin [Not Recovered/Not Resolved]
  - Hypoaesthesia [Not Recovered/Not Resolved]
  - Pallor [Not Recovered/Not Resolved]
  - Fatigue [Not Recovered/Not Resolved]
  - Anaemia [Recovered/Resolved]
  - Skin exfoliation [Not Recovered/Not Resolved]
  - Rash macular [Not Recovered/Not Resolved]
